FAERS Safety Report 5318711-2 (Version None)
Quarter: 2007Q2

REPORT INFORMATION
  Report Type: 
  Country: None (occurrence: None)
  Receive Date: 20070503
  Receipt Date: 20070503
  Transmission Date: 20071010
  Serious: Yes (Hospitalization)
  Sender: FDA-Public Use
  Company Number: None

PATIENT
  Age: 44 Year
  Sex: Male
  Weight: 60 kg

DRUGS (1)
  1. INVEGA [Suspect]
     Dosage: 12 MG Q DAY PO
     Route: 048
     Dates: start: 20070410

REACTIONS (3)
  - AUTONOMIC NERVOUS SYSTEM IMBALANCE [None]
  - DYSTONIA [None]
  - NO THERAPEUTIC RESPONSE [None]
